FAERS Safety Report 24663409 (Version 1)
Quarter: 2024Q4

REPORT INFORMATION
  Report Type: Report from Study
  Country: US (occurrence: US)
  Receive Date: 20241126
  Receipt Date: 20241126
  Transmission Date: 20250114
  Serious: Yes (Other)
  Sender: ROCHE
  Company Number: US-ROCHE-10000128645

PATIENT
  Age: 38 Year
  Sex: Female
  Weight: 56.7 kg

DRUGS (3)
  1. XOLAIR [Suspect]
     Active Substance: OMALIZUMAB
     Indication: Food allergy
     Dosage: 150 MG AUTOINJECTOR
     Route: 058
  2. XOLAIR [Suspect]
     Active Substance: OMALIZUMAB
     Dosage: 150 MG AUTOINJECTOR
     Route: 058
     Dates: start: 20240111
  3. EPINEPHRINE [Concomitant]
     Active Substance: EPINEPHRINE
     Dates: start: 20240111, end: 20240111

REACTIONS (4)
  - Drug hypersensitivity [Unknown]
  - Throat irritation [Recovered/Resolved]
  - Pharyngeal swelling [Recovered/Resolved]
  - Flushing [Recovered/Resolved]

NARRATIVE: CASE EVENT DATE: 20240111
